FAERS Safety Report 4425929-X (Version None)
Quarter: 2004Q3

REPORT INFORMATION
  Report Type: 
  Country: None (occurrence: None)
  Receive Date: 20040719
  Receipt Date: 20030827
  Transmission Date: 20050211
  Serious: Yes (Hospitalization)
  Sender: FDA-Public Use
  Company Number: 178468

PATIENT
  Age: 18 Year
  Sex: Female
  Weight: 76.2043 kg

DRUGS (2)
  1. AVONEX [Suspect]
     Indication: MULTIPLE SCLEROSIS
     Dosage: 30 MCG QW IM
     Route: 030
     Dates: start: 20020601
  2. CLARITIN [Concomitant]

REACTIONS (6)
  - DEPRESSION [None]
  - INFLUENZA LIKE ILLNESS [None]
  - MIGRAINE [None]
  - MULTIPLE SCLEROSIS RELAPSE [None]
  - PHARYNGOLARYNGEAL PAIN [None]
  - RASH PRURITIC [None]
